FAERS Safety Report 5677466-2 (Version None)
Quarter: 2008Q1

REPORT INFORMATION
  Report Type: 
  Country: None (occurrence: None)
  Receive Date: 20080324
  Receipt Date: 20080312
  Transmission Date: 20080703
  Serious: Yes (Disabling, Other)
  Sender: FDA-Public Use
  Company Number: GB-PFIZER INC-2008019923

PATIENT
  Sex: Male
  Weight: 70.8 kg

DRUGS (4)
  1. PREGABALIN [Suspect]
     Indication: EPILEPSY
     Dates: start: 20071101, end: 20080301
  2. EPILIM [Concomitant]
     Route: 048
  3. PIRACETAM [Concomitant]
     Route: 048
  4. CLOBAZAM [Concomitant]

REACTIONS (5)
  - IMMOBILE [None]
  - MEAN CELL VOLUME INCREASED [None]
  - NEUTROPHIL COUNT INCREASED [None]
  - OEDEMA PERIPHERAL [None]
  - PLATELET COUNT DECREASED [None]
